FAERS Safety Report 17257741 (Version 2)
Quarter: 2021Q2

REPORT INFORMATION
  Report Type: Report from Study
  Country: DE (occurrence: DE)
  Receive Date: 20200110
  Receipt Date: 20210527
  Transmission Date: 20210716
  Serious: Yes (Hospitalization)
  Sender: FDA-Public Use
  Company Number: DE-ASTRAZENECA-2019SF70793

PATIENT
  Age: 50 Year
  Sex: Female

DRUGS (52)
  1. DURVALUMAB. [Suspect]
     Active Substance: DURVALUMAB
     Indication: OVARIAN CANCER
     Dosage: 1120.0MG ONCE/SINGLE ADMINISTRATION
     Route: 042
     Dates: start: 20200811, end: 20200811
  2. CARBOPLATIN. [Concomitant]
     Active Substance: CARBOPLATIN
     Indication: OVARIAN CANCER
     Dosage: 495.0MG ONCE/SINGLE ADMINISTRATION
     Route: 065
     Dates: start: 20190919, end: 20190919
  3. BEVACIZUMAB. [Concomitant]
     Active Substance: BEVACIZUMAB
     Indication: OVARIAN CANCER
     Dosage: 1412.5MG ONCE/SINGLE ADMINISTRATION
     Route: 065
     Dates: start: 20200630, end: 20200630
  4. BEVACIZUMAB. [Concomitant]
     Active Substance: BEVACIZUMAB
     Indication: OVARIAN CANCER
     Dosage: 1412.5MG ONCE/SINGLE ADMINISTRATION
     Route: 065
     Dates: start: 20200811, end: 20200811
  5. DURVALUMAB. [Suspect]
     Active Substance: DURVALUMAB
     Indication: OVARIAN CANCER
     Dosage: 1120.0MG ONCE/SINGLE ADMINISTRATION
     Route: 042
     Dates: start: 20200317, end: 20200317
  6. DURVALUMAB. [Suspect]
     Active Substance: DURVALUMAB
     Indication: OVARIAN CANCER
     Dosage: 1120.0MG ONCE/SINGLE ADMINISTRATION
     Route: 042
     Dates: start: 20200901, end: 20200901
  7. CARBOPLATIN. [Concomitant]
     Active Substance: CARBOPLATIN
     Indication: OVARIAN CANCER
     Dosage: 675.0MG ONCE/SINGLE ADMINISTRATION
     Route: 065
     Dates: start: 20191223, end: 20191223
  8. DURVALUMAB. [Suspect]
     Active Substance: DURVALUMAB
     Indication: OVARIAN CANCER
     Dosage: 1120.0MG ONCE/SINGLE ADMINISTRATION
     Route: 042
     Dates: start: 20191126, end: 20191126
  9. DURVALUMAB. [Suspect]
     Active Substance: DURVALUMAB
     Indication: OVARIAN CANCER
     Dosage: 1120.0MG ONCE/SINGLE ADMINISTRATION
     Route: 042
     Dates: start: 20201123, end: 20201123
  10. BEVACIZUMAB. [Concomitant]
     Active Substance: BEVACIZUMAB
     Indication: OVARIAN CANCER
     Dosage: 1412.5MG ONCE/SINGLE ADMINISTRATION
     Route: 065
     Dates: start: 20201123, end: 20201123
  11. DURVALUMAB. [Suspect]
     Active Substance: DURVALUMAB
     Indication: OVARIAN CANCER
     Dosage: 1120.0MG ONCE/SINGLE ADMINISTRATION
     Route: 042
     Dates: start: 20200204, end: 20200204
  12. DURVALUMAB. [Suspect]
     Active Substance: DURVALUMAB
     Indication: OVARIAN CANCER
     Dosage: 1120.0MG ONCE/SINGLE ADMINISTRATION
     Route: 042
     Dates: start: 20200407, end: 20200407
  13. CARBOPLATIN. [Concomitant]
     Active Substance: CARBOPLATIN
     Indication: OVARIAN CANCER
     Dosage: 675.0MG ONCE/SINGLE ADMINISTRATION
     Route: 065
     Dates: start: 20191126, end: 20191126
  14. BEVACIZUMAB. [Concomitant]
     Active Substance: BEVACIZUMAB
     Indication: OVARIAN CANCER
     Dosage: 1412.5MG ONCE/SINGLE ADMINISTRATION
     Route: 065
     Dates: start: 20200901, end: 20200901
  15. DURVALUMAB. [Suspect]
     Active Substance: DURVALUMAB
     Indication: OVARIAN CANCER
     Dosage: 1120.0MG ONCE/SINGLE ADMINISTRATION
     Route: 042
     Dates: start: 20200225, end: 20200225
  16. DURVALUMAB. [Suspect]
     Active Substance: DURVALUMAB
     Indication: OVARIAN CANCER
     Dosage: 1120.0MG ONCE/SINGLE ADMINISTRATION
     Route: 042
     Dates: start: 20200630, end: 20200630
  17. DURVALUMAB. [Suspect]
     Active Substance: DURVALUMAB
     Indication: OVARIAN CANCER
     Dosage: 1120.0MG ONCE/SINGLE ADMINISTRATION
     Route: 042
     Dates: start: 20201214, end: 20201214
  18. BEVACIZUMAB. [Concomitant]
     Active Substance: BEVACIZUMAB
     Indication: OVARIAN CANCER
     Dosage: 1412.5MG ONCE/SINGLE ADMINISTRATION
     Route: 065
     Dates: start: 20200114, end: 20200114
  19. BEVACIZUMAB. [Concomitant]
     Active Substance: BEVACIZUMAB
     Indication: OVARIAN CANCER
     Dosage: 1412.5MG ONCE/SINGLE ADMINISTRATION
     Route: 065
     Dates: start: 20200407, end: 20200407
  20. DURVALUMAB. [Suspect]
     Active Substance: DURVALUMAB
     Indication: OVARIAN CANCER
     Dosage: 1120.0MG ONCE/SINGLE ADMINISTRATION
     Route: 042
     Dates: start: 20200609, end: 20200609
  21. DURVALUMAB. [Suspect]
     Active Substance: DURVALUMAB
     Indication: OVARIAN CANCER
     Dosage: 1120.0MG ONCE/SINGLE ADMINISTRATION
     Route: 042
     Dates: start: 20200721, end: 20200721
  22. DURVALUMAB. [Suspect]
     Active Substance: DURVALUMAB
     Indication: OVARIAN CANCER
     Dosage: 1120.0MG ONCE/SINGLE ADMINISTRATION
     Route: 042
     Dates: start: 20200925, end: 20200925
  23. DURVALUMAB. [Suspect]
     Active Substance: DURVALUMAB
     Indication: OVARIAN CANCER
     Dosage: 1120.0MG ONCE/SINGLE ADMINISTRATION
     Route: 042
     Dates: start: 20201102, end: 20201102
  24. PACLITAXEL. [Suspect]
     Active Substance: PACLITAXEL
     Indication: OVARIAN CANCER
     Dosage: 350.0MG ONCE/SINGLE ADMINISTRATION
     Route: 065
     Dates: start: 20190919, end: 20190919
  25. BEVACIZUMAB. [Concomitant]
     Active Substance: BEVACIZUMAB
     Indication: OVARIAN CANCER
     Dosage: 1412.5MG ONCE/SINGLE ADMINISTRATION
     Route: 065
     Dates: start: 20190919, end: 20190919
  26. BEVACIZUMAB. [Concomitant]
     Active Substance: BEVACIZUMAB
     Indication: OVARIAN CANCER
     Dosage: 1412.5MG ONCE/SINGLE ADMINISTRATION
     Route: 065
     Dates: start: 20200519, end: 20200519
  27. ENALAPRIL [Concomitant]
     Active Substance: ENALAPRIL
     Indication: HYPERTENSION
     Route: 048
     Dates: start: 2009
  28. DURVALUMAB. [Suspect]
     Active Substance: DURVALUMAB
     Indication: OVARIAN CANCER
     Dosage: 1120.0MG ONCE/SINGLE ADMINISTRATION
     Route: 042
     Dates: start: 20191105, end: 20191105
  29. DURVALUMAB. [Suspect]
     Active Substance: DURVALUMAB
     Indication: OVARIAN CANCER
     Dosage: 1120.0MG ONCE/SINGLE ADMINISTRATION
     Route: 042
     Dates: start: 20200428, end: 20200428
  30. DURVALUMAB. [Suspect]
     Active Substance: DURVALUMAB
     Indication: OVARIAN CANCER
     Dosage: 1120.0MG ONCE/SINGLE ADMINISTRATION
     Route: 042
     Dates: start: 20200519, end: 20200519
  31. PACLITAXEL. [Suspect]
     Active Substance: PACLITAXEL
     Indication: OVARIAN CANCER
     Dosage: 372.0MG ONCE/SINGLE ADMINISTRATION
     Route: 065
     Dates: start: 20190829, end: 20190829
  32. PACLITAXEL. [Suspect]
     Active Substance: PACLITAXEL
     Indication: OVARIAN CANCER
     Dosage: 350.0MG ONCE/SINGLE ADMINISTRATION
     Route: 065
     Dates: start: 20191011, end: 20191011
  33. PLACEBO [Suspect]
     Active Substance: UNSPECIFIED INGREDIENT
     Indication: OVARIAN CANCER
     Dosage: TWO TIMES A DAY
     Route: 048
     Dates: start: 20200114, end: 20210112
  34. CARBOPLATIN. [Concomitant]
     Active Substance: CARBOPLATIN
     Indication: OVARIAN CANCER
     Dosage: 675.0MG ONCE/SINGLE ADMINISTRATION
     Route: 065
     Dates: start: 20191011, end: 20191011
  35. CARBOPLATIN. [Concomitant]
     Active Substance: CARBOPLATIN
     Indication: OVARIAN CANCER
     Dosage: 675.0MG ONCE/SINGLE ADMINISTRATION
     Route: 065
     Dates: start: 20191105, end: 20191105
  36. BEVACIZUMAB. [Concomitant]
     Active Substance: BEVACIZUMAB
     Indication: OVARIAN CANCER
     Dosage: 1412.5MG ONCE/SINGLE ADMINISTRATION
     Route: 065
     Dates: start: 20191011, end: 20191011
  37. BEVACIZUMAB. [Concomitant]
     Active Substance: BEVACIZUMAB
     Indication: OVARIAN CANCER
     Dosage: 1412.5MG ONCE/SINGLE ADMINISTRATION
     Route: 065
     Dates: start: 20191105, end: 20191105
  38. BEVACIZUMAB. [Concomitant]
     Active Substance: BEVACIZUMAB
     Indication: OVARIAN CANCER
     Dosage: 1412.5MG ONCE/SINGLE ADMINISTRATION
     Route: 065
     Dates: start: 20200204, end: 20200204
  39. BEVACIZUMAB. [Concomitant]
     Active Substance: BEVACIZUMAB
     Indication: OVARIAN CANCER
     Dosage: 1412.5MG ONCE/SINGLE ADMINISTRATION
     Route: 065
     Dates: start: 20200925, end: 20200925
  40. L?THYROXIN [Concomitant]
     Active Substance: LEVOTHYROXINE SODIUM
     Indication: HYPOTHYROIDISM
     Route: 048
     Dates: start: 2009
  41. DURVALUMAB. [Suspect]
     Active Substance: DURVALUMAB
     Indication: OVARIAN CANCER
     Dosage: 1120.0MG ONCE/SINGLE ADMINISTRATION
     Route: 042
     Dates: start: 20190919, end: 20190919
  42. DURVALUMAB. [Suspect]
     Active Substance: DURVALUMAB
     Indication: OVARIAN CANCER
     Dosage: 1120.0MG ONCE/SINGLE ADMINISTRATION
     Route: 042
     Dates: start: 20191011, end: 20191011
  43. DURVALUMAB. [Suspect]
     Active Substance: DURVALUMAB
     Indication: OVARIAN CANCER
     Dosage: 1120.0MG ONCE/SINGLE ADMINISTRATION
     Route: 042
     Dates: start: 20201013, end: 20201013
  44. DURVALUMAB. [Suspect]
     Active Substance: DURVALUMAB
     Indication: OVARIAN CANCER
     Dosage: 1120.0MG ONCE/SINGLE ADMINISTRATION
     Route: 042
     Dates: start: 20210104, end: 20210104
  45. PACLITAXEL. [Suspect]
     Active Substance: PACLITAXEL
     Indication: OVARIAN CANCER
     Dosage: 350.0MG ONCE/SINGLE ADMINISTRATION
     Route: 065
     Dates: start: 20191105, end: 20191105
  46. CARBOPLATIN. [Concomitant]
     Active Substance: CARBOPLATIN
     Indication: OVARIAN CANCER
     Dosage: 705.0MG ONCE/SINGLE ADMINISTRATION
     Route: 065
     Dates: start: 20190829, end: 20190829
  47. BEVACIZUMAB. [Concomitant]
     Active Substance: BEVACIZUMAB
     Indication: OVARIAN CANCER
     Dosage: 1412.5MG ONCE/SINGLE ADMINISTRATION
     Route: 065
     Dates: start: 20200225, end: 20200225
  48. BEVACIZUMAB. [Concomitant]
     Active Substance: BEVACIZUMAB
     Indication: OVARIAN CANCER
     Dosage: 1412.5MG ONCE/SINGLE ADMINISTRATION
     Route: 065
     Dates: start: 20200428, end: 20200428
  49. BEVACIZUMAB. [Concomitant]
     Active Substance: BEVACIZUMAB
     Indication: OVARIAN CANCER
     Dosage: 1412.5MG ONCE/SINGLE ADMINISTRATION
     Route: 065
     Dates: start: 20200609, end: 20200609
  50. BEVACIZUMAB. [Concomitant]
     Active Substance: BEVACIZUMAB
     Indication: OVARIAN CANCER
     Dosage: 1412.5MG ONCE/SINGLE ADMINISTRATION
     Route: 065
     Dates: start: 20200721, end: 20200721
  51. NEBIVOLOL. [Concomitant]
     Active Substance: NEBIVOLOL
     Indication: HYPERTENSION
     Route: 048
     Dates: start: 2009
  52. PANTOPRAZOL [Concomitant]
     Active Substance: PANTOPRAZOLE SODIUM
     Indication: GASTROINTESTINAL DISORDER PROPHYLAXIS
     Route: 048
     Dates: start: 2009

REACTIONS (1)
  - Hypersensitivity [Recovered/Resolved]

NARRATIVE: CASE EVENT DATE: 20191126
